FAERS Safety Report 8972878 (Version 1)
Quarter: 2012Q4

REPORT INFORMATION
  Report Type: 
  Country: FR (occurrence: FR)
  Receive Date: 20121218
  Receipt Date: 20121218
  Transmission Date: 20130627
  Serious: Yes (Hospitalization, Other)
  Sender: FDA-Public Use
  Company Number: FR-009507513-1007FRA00023

PATIENT
  Age: 71 Year
  Sex: Male

DRUGS (16)
  1. JANUMET [Suspect]
     Indication: TYPE 2 DIABETES MELLITUS
     Dosage: 1000 mg-50
     Route: 048
     Dates: start: 20100325, end: 20100401
  2. DIAMICRON [Suspect]
     Indication: TYPE 2 DIABETES MELLITUS
     Dosage: 120 mg, qd
     Route: 048
     Dates: end: 20100401
  3. MK-9378 [Suspect]
     Indication: TYPE 2 DIABETES MELLITUS
     Dosage: 1000 mg, qd
     Route: 048
     Dates: end: 20100401
  4. ROCEPHIN [Suspect]
     Dosage: UNK g, UNK
     Route: 030
     Dates: start: 20100320, end: 20100401
  5. DIFFU-K [Concomitant]
  6. ZESTRIL [Concomitant]
     Dosage: UNK mg, UNK
     Route: 048
  7. MK-0805 [Concomitant]
     Dosage: 40 mg, qd
     Route: 048
  8. AMIODARONE HYDROCHLORIDE [Concomitant]
     Dosage: UNK mg, UNK
     Route: 048
  9. KREDEX [Concomitant]
     Dosage: UNK mg, UNK
     Route: 048
  10. LEVOTHYROX [Concomitant]
     Dosage: UNK ?g, UNK
     Route: 048
  11. KARDEGIC [Concomitant]
     Dosage: UNK mg, UNK
     Route: 048
  12. EUPRESSYL [Concomitant]
     Dosage: UNK mg, UNK
     Route: 048
  13. INIPOMP [Concomitant]
     Dosage: UNK mg, UNK
     Route: 048
  14. SPECIAFOLDINE [Concomitant]
  15. THIAMINE [Concomitant]
  16. PYRIDOXINE [Concomitant]

REACTIONS (3)
  - Hypoglycaemia [Recovered/Resolved]
  - Coma [Recovered/Resolved]
  - Aphasia [Recovered/Resolved]
